FAERS Safety Report 14346759 (Version 1)
Quarter: 2018Q1

REPORT INFORMATION
  Report Type: Spontaneous
  Country: US (occurrence: US)
  Receive Date: 20180103
  Receipt Date: 20180103
  Transmission Date: 20180509
  Serious: Yes (Other)
  Sender: FDA-Public Use
  Company Number: US-TEVA-2017-US-841614

PATIENT
  Age: 63 Year
  Sex: Male

DRUGS (5)
  1. ZINC. [Concomitant]
     Active Substance: ZINC
     Route: 065
  2. VITAMIN C [Concomitant]
     Active Substance: ASCORBIC ACID
     Route: 065
  3. QVAR [Suspect]
     Active Substance: BECLOMETHASONE DIPROPIONATE
     Indication: ASTHMA
     Dosage: 320 MICROGRAM DAILY; 2 PUFFS IN THE MORNING AND 2 PUFFS IN THE EVENING
  4. ASPIRIN. [Concomitant]
     Active Substance: ASPIRIN
     Route: 065
  5. LORATADINE. [Concomitant]
     Active Substance: LORATADINE
     Route: 065

REACTIONS (7)
  - Dysphonia [Unknown]
  - Tinea infection [Unknown]
  - Hiatus hernia [Unknown]
  - Fascial infection [Unknown]
  - Rotator cuff repair [Unknown]
  - Tinea pedis [Unknown]
  - Gastrooesophageal reflux disease [Unknown]

NARRATIVE: CASE EVENT DATE: 20170606
